FAERS Safety Report 6831711-6 (Version None)
Quarter: 2010Q3

REPORT INFORMATION
  Report Type: 
  Country: None (occurrence: None)
  Receive Date: 20100712
  Receipt Date: 20100701
  Transmission Date: 20110219
  Serious: Yes (Hospitalization)
  Sender: FDA-Public Use
  Company Number: US-ASTRAZENECA-2010SE30785

PATIENT
  Age: 59 Year
  Sex: Male
  Weight: 72.6 kg

DRUGS (5)
  1. SYMBICORT [Suspect]
     Indication: CHRONIC OBSTRUCTIVE PULMONARY DISEASE
     Dosage: 740 MCG, TWO TIMES A DAY.
     Route: 055
     Dates: start: 20091201
  2. PROAIR HFA [Concomitant]
     Indication: CHRONIC OBSTRUCTIVE PULMONARY DISEASE
     Dosage: AS REQUIRED.
  3. TOVIAZ [Concomitant]
     Indication: HYPERTONIC BLADDER
  4. LITHIUM [Concomitant]
  5. KLONOPIN [Concomitant]

REACTIONS (5)
  - ANXIETY [None]
  - DRY MOUTH [None]
  - ORAL DISCOMFORT [None]
  - PHARYNGEAL ERYTHEMA [None]
  - STOMATITIS [None]
